FAERS Safety Report 20034542 (Version 1)
Quarter: 2021Q4

REPORT INFORMATION
  Report Type: Spontaneous
  Country: US (occurrence: US)
  Receive Date: 20211104
  Receipt Date: 20211104
  Transmission Date: 20220303
  Serious: No
  Sender: FDA-Public Use
  Company Number: US-AMGEN-USASP2021167097

PATIENT
  Sex: Female

DRUGS (2)
  1. REPATHA [Suspect]
     Active Substance: EVOLOCUMAB
     Indication: Product used for unknown indication
     Dosage: Q2WK
     Route: 065
     Dates: start: 2020
  2. PRALUENT [Concomitant]
     Active Substance: ALIROCUMAB
     Dosage: UNK
     Dates: end: 202108

REACTIONS (1)
  - Nausea [Recovered/Resolved]
